FAERS Safety Report 24066248 (Version 2)
Quarter: 2024Q3

REPORT INFORMATION
  Report Type: Report from Study
  Country: US (occurrence: US)
  Receive Date: 20240709
  Receipt Date: 20240726
  Transmission Date: 20241017
  Serious: Yes (Hospitalization)
  Sender: JAZZ
  Company Number: US-JAZZ PHARMACEUTICALS-2023-US-022640

PATIENT
  Age: 11 Year
  Sex: Female

DRUGS (4)
  1. SODIUM OXYBATE [Suspect]
     Active Substance: SODIUM OXYBATE
     Indication: Hypersomnia
     Dosage: 3 GRAM, QD
     Route: 048
  2. SODIUM OXYBATE [Suspect]
     Active Substance: SODIUM OXYBATE
     Dosage: 3 MILLILITER, BID
     Route: 048
  3. SODIUM OXYBATE [Suspect]
     Active Substance: SODIUM OXYBATE
     Dosage: UNK
  4. CEPHALEXIN [Concomitant]
     Active Substance: CEPHALEXIN
     Indication: Product used for unknown indication

REACTIONS (3)
  - Hospitalisation [Unknown]
  - Blood pressure increased [Recovered/Resolved]
  - Off label use [Unknown]

NARRATIVE: CASE EVENT DATE: 20240701
